FAERS Safety Report 4268547-9 (Version None)
Quarter: 2004Q1

REPORT INFORMATION
  Report Type: 
  Country: None (occurrence: None)
  Receive Date: 20040109
  Receipt Date: 20040109
  Transmission Date: 20041129
  Serious: Yes (Other)
  Sender: FDA-Public Use
  Company Number: None

PATIENT
  Sex: Female
  Weight: 60 kg

DRUGS (1)
  1. PAROXETINE (GENERIC) 20 MG 1PO/D [Suspect]
     Indication: DYSTHYMIC DISORDER
     Dosage: 20 MG 1PO/D
     Route: 048
     Dates: start: 20030901

REACTIONS (5)
  - ANORGASMIA [None]
  - ANXIETY [None]
  - INSOMNIA [None]
  - IRRITABILITY [None]
  - PHARMACEUTICAL PRODUCT COMPLAINT [None]
